FAERS Safety Report 24411276 (Version 1)
Quarter: 2024Q4

REPORT INFORMATION
  Report Type: Spontaneous
  Country: CA (occurrence: CA)
  Receive Date: 20241008
  Receipt Date: 20241008
  Transmission Date: 20250115
  Serious: Yes (Other)
  Sender: PFIZER
  Company Number: CA-PFIZER INC-202400270510

PATIENT
  Sex: Male

DRUGS (1)
  1. MINOXIDIL [Suspect]
     Active Substance: MINOXIDIL
     Dosage: UNK

REACTIONS (2)
  - Erectile dysfunction [Unknown]
  - Libido disorder [Unknown]
